FAERS Safety Report 25239706 (Version 1)
Quarter: 2025Q2

REPORT INFORMATION
  Report Type: Report from Study
  Country: US (occurrence: US)
  Receive Date: 20250425
  Receipt Date: 20250425
  Transmission Date: 20250716
  Serious: No
  Sender: TAKEDA
  Company Number: US-TAKEDA-US201717236

PATIENT
  Age: 15 Year
  Sex: Male
  Weight: 188.6 kg

DRUGS (22)
  1. HUMAN IMMUNOGLOBULIN G\HYALURONIDASE RECOMBINANT HUMAN [Suspect]
     Active Substance: HUMAN IMMUNOGLOBULIN G\HYALURONIDASE (HUMAN RECOMBINANT)
     Indication: Primary immunodeficiency syndrome
  2. CUVITRU [Suspect]
     Active Substance: HUMAN IMMUNOGLOBULIN G
     Indication: Immunodeficiency common variable
  3. ALPRAZOLAM [Concomitant]
     Active Substance: ALPRAZOLAM
  4. CLARITIN [Concomitant]
     Active Substance: LORATADINE
  5. CLOMIPHENE CITRATE [Concomitant]
     Active Substance: CLOMIPHENE CITRATE
  6. PREDNISONE [Concomitant]
     Active Substance: PREDNISONE
  7. PRASTERONE [Concomitant]
     Active Substance: PRASTERONE
  8. BACTRIM [Concomitant]
     Active Substance: SULFAMETHOXAZOLE\TRIMETHOPRIM
  9. SINGULAIR [Concomitant]
     Active Substance: MONTELUKAST SODIUM
  10. ANASTROZOLE [Concomitant]
     Active Substance: ANASTROZOLE
  11. EPINEPHRINE [Concomitant]
     Active Substance: EPINEPHRINE
  12. TESTOSTERONE CYPIONATE [Concomitant]
     Active Substance: TESTOSTERONE CYPIONATE
  13. ALBUTEROL SULFATE [Concomitant]
     Active Substance: ALBUTEROL SULFATE
  14. MAGNESIUM [Concomitant]
     Active Substance: MAGNESIUM
  15. ALBUTEROL SULFATE [Concomitant]
     Active Substance: ALBUTEROL SULFATE
  16. VITAMIN D3 [Concomitant]
     Active Substance: CHOLECALCIFEROL
  17. MINOCYCLINE HYDROCHLORIDE [Concomitant]
     Active Substance: MINOCYCLINE HYDROCHLORIDE
  18. MOUNJARO [Concomitant]
     Active Substance: TIRZEPATIDE
  19. ATROVENT [Concomitant]
     Active Substance: IPRATROPIUM BROMIDE
  20. ZINC [Concomitant]
     Active Substance: ZINC
  21. LIDOCAINE AND PRILOCAINE [Concomitant]
     Active Substance: LIDOCAINE\PRILOCAINE
  22. SYMBICORT [Concomitant]
     Active Substance: BUDESONIDE\FORMOTEROL FUMARATE DIHYDRATE

REACTIONS (2)
  - Sinusitis [Recovered/Resolved]
  - Drug hypersensitivity [Unknown]

NARRATIVE: CASE EVENT DATE: 20170501
